FAERS Safety Report 9831420 (Version 2)
Quarter: 2014Q1

REPORT INFORMATION
  Report Type: Spontaneous
  Country: US (occurrence: US)
  Receive Date: 20140121
  Receipt Date: 20140320
  Transmission Date: 20141002
  Serious: Yes (Other)
  Sender: FDA-Public Use
  Company Number: US-AMGEN-USASP2014002747

PATIENT
  Age: 65 Year
  Sex: Female
  Weight: 59.41 kg

DRUGS (11)
  1. PROLIA [Suspect]
     Indication: OSTEOPOROSIS
     Dosage: 60 MG, Q6MO
     Route: 058
     Dates: start: 20130716
  2. AVAPRO [Concomitant]
  3. LIPITOR [Concomitant]
     Dosage: 20 MG, QHS
  4. OXYCODONE [Concomitant]
     Indication: PAIN
     Dosage: 10 MG, AS NECESSARY
  5. LORAZEPAM [Concomitant]
     Dosage: 1 MG, QHS
  6. IRBESARTAN [Concomitant]
     Dosage: 150 MG, 1/2 AT BEDTIME
  7. NOVOLOG [Concomitant]
     Dosage: 10 ML, UNK
  8. BAYER ASPIRIN [Concomitant]
     Dosage: 3235 MG, AS NECESSARY
  9. ADRIAMYCIN                         /00330901/ [Concomitant]
  10. CYTOXAN [Concomitant]
  11. FEMARA [Concomitant]

REACTIONS (1)
  - Spinal compression fracture [Unknown]
